FAERS Safety Report 9806309 (Version 1)
Quarter: 2014Q1

REPORT INFORMATION
  Report Type: Spontaneous
  Country: DE (occurrence: None)
  Receive Date: 20140107
  Receipt Date: 20140107
  Transmission Date: 20141002
  Serious: Yes (Other)
  Sender: FDA-Public Use
  Company Number: SYM-2014-14589

PATIENT
  Sex: Female

DRUGS (1)
  1. METRONIDAZOLE (METRONIDAZOLE) (METRONIDAZOLE) [Suspect]
     Indication: GARDNERELLA INFECTION
     Route: 048

REACTIONS (3)
  - Muscle spasms [None]
  - Hypoaesthesia [None]
  - Motor dysfunction [None]
